FAERS Safety Report 10073692 (Version 2)
Quarter: 2014Q2

REPORT INFORMATION
  Report Type: Spontaneous
  Country: AU (occurrence: AU)
  Receive Date: 20140411
  Receipt Date: 20140430
  Transmission Date: 20141212
  Serious: Yes (Hospitalization)
  Sender: FDA-Public Use
  Company Number: AU-BRISTOL-MYERS SQUIBB COMPANY-20608196

PATIENT
  Age: 60 Year
  Sex: Male

DRUGS (1)
  1. BYETTA [Suspect]
     Dosage: INJ

REACTIONS (3)
  - Swelling [Recovered/Resolved]
  - Rash [Recovered/Resolved]
  - Dysphagia [Recovered/Resolved]
